FAERS Safety Report 4514119-8 (Version None)
Quarter: 2004Q4

REPORT INFORMATION
  Report Type: 
  Country: None (occurrence: None)
  Receive Date: 20041124
  Receipt Date: 20041110
  Transmission Date: 20050328
  Serious: Yes (Hospitalization)
  Sender: FDA-Public Use
  Company Number: CIP04002310

PATIENT

DRUGS (8)
  1. FURADOINE(NITROFURANTOIN) TABLET, 50MG [Suspect]
     Indication: URINARY TRACT INFECTION
     Dosage: 300 MG DAILY, ORAL
     Route: 048
     Dates: start: 20041005, end: 20041015
  2. FURADOINE(NITROFURANTOIN) TABLET, 50MG [Suspect]
     Indication: URINARY TRACT INFECTION
     Dosage: 300 MG DAILY, ORAL
     Route: 048
     Dates: start: 20041027, end: 20041029
  3. NEXIUM [Concomitant]
  4. KARDEGIC (ACETYLSALICYLATE) POWDER [Concomitant]
  5. VAXIGRIP (INFLUENZA VIRUS VACCINE POLYVALENT) [Concomitant]
  6. INDAPAMIDE [Concomitant]
  7. PROTHIADEN [Concomitant]
  8. POTASSIUM CHLORIDE [Concomitant]

REACTIONS (6)
  - APHASIA [None]
  - CONFUSIONAL STATE [None]
  - COUGH [None]
  - FATIGUE [None]
  - HYPERTENSION [None]
  - PYREXIA [None]
